FAERS Safety Report 16818661 (Version 3)
Quarter: 2019Q4

REPORT INFORMATION
  Report Type: Spontaneous
  Country: PT (occurrence: PT)
  Receive Date: 20190917
  Receipt Date: 20191227
  Transmission Date: 20200122
  Serious: Yes (Other)
  Sender: FDA-Public Use
  Company Number: PT-GLAXOSMITHKLINE-PT2019EME165822

PATIENT

DRUGS (1)
  1. ELEBRATO ELLIPTA [Suspect]
     Active Substance: FLUTICASONE FUROATE\UMECLIDINIUM BROMIDE\VILANTEROL TRIFENATATE
     Indication: PRODUCT USED FOR UNKNOWN INDICATION
     Dosage: UNK UNK, TID  (30 DOSES)

REACTIONS (4)
  - Extra dose administered [Unknown]
  - Pharyngeal haemorrhage [Unknown]
  - Product use issue [Unknown]
  - Product complaint [Unknown]
